FAERS Safety Report 9759737 (Version 1)
Quarter: 2013Q4

REPORT INFORMATION
  Report Type: Spontaneous
  Country: FR (occurrence: None)
  Receive Date: 20131212
  Receipt Date: 20131212
  Transmission Date: 20140711
  Serious: Yes (Death)
  Sender: FDA-Public Use
  Company Number: KAD201312-001582

PATIENT
  Sex: 0

DRUGS (4)
  1. RIBAVIRIN [Suspect]
     Indication: MEASLES
     Route: 042
  2. RIBAVIRIN [Suspect]
     Indication: PNEUMONITIS
     Route: 042
  3. IMMUNOGLOBULINS [Suspect]
     Indication: MEASLES
  4. IMMUNOGLOBULINS [Suspect]
     Indication: PNEUMONITIS

REACTIONS (2)
  - Acute respiratory failure [None]
  - Off label use [None]
